FAERS Safety Report 7763089 (Version 7)
Quarter: 2014Q1

REPORT INFORMATION
  Report Type: Spontaneous
  Country: US (occurrence: US)
  Receive Date: 20110118
  Receipt Date: 20140121
  Transmission Date: 20141002
  Serious: Yes (Other)
  Sender: FDA-Public Use
  Company Number: US-US-EMD SERONO, INC.-233264J10USA

PATIENT
  Sex: Female
  Weight: 93 kg

DRUGS (5)
  1. REBIF [Suspect]
     Indication: MULTIPLE SCLEROSIS
     Route: 058
     Dates: start: 20061229, end: 201308
  2. LISINOPRIL [Concomitant]
     Indication: HYPERTENSION
  3. DYAZIDE [Concomitant]
     Indication: HYPERTENSION
  4. ESTRATEST (ESTERIFIED ESTROGENS AND METHYLTESTOSTERONE) [Concomitant]
     Route: 048
     Dates: start: 200709
  5. DETROL LA (TOLTERODINE TARTRATE) [Concomitant]
     Indication: NEUROGENIC BLADDER
     Route: 048
     Dates: start: 200709

REACTIONS (5)
  - Nephropathy [Not Recovered/Not Resolved]
  - Hyperlipidaemia [Unknown]
  - Asthenia [Unknown]
  - Hypersomnia [Unknown]
  - Muscular weakness [Unknown]
